FAERS Safety Report 11264249 (Version 1)
Quarter: 2015Q3

REPORT INFORMATION
  Report Type: Spontaneous
  Country: US (occurrence: None)
  Receive Date: 20150710
  Receipt Date: 20150710
  Transmission Date: 20151125
  Serious: No
  Sender: FDA-Public Use
  Company Number: None

PATIENT
  Sex: Male

DRUGS (1)
  1. INTRON A [Suspect]
     Active Substance: INTERFERON ALFA-2B
     Indication: LYMPHOMA
     Dosage: 3 MU M, W, F SUBCUT
     Route: 058
     Dates: start: 20150424, end: 20150518

REACTIONS (2)
  - Fatigue [None]
  - Nausea [None]
